FAERS Safety Report 9476798 (Version 1)
Quarter: 2013Q3

REPORT INFORMATION
  Report Type: Spontaneous
  Country: US (occurrence: US)
  Receive Date: 20130826
  Receipt Date: 20130826
  Transmission Date: 20140515
  Serious: Yes (Other)
  Sender: FDA-Public Use
  Company Number: US-TEVA-428043USA

PATIENT
  Sex: Female

DRUGS (1)
  1. CLARAVIS [Suspect]
     Route: 048
     Dates: start: 20130411, end: 20130821

REACTIONS (15)
  - Suicidal ideation [Unknown]
  - Depression [Unknown]
  - Mood altered [Unknown]
  - Abnormal behaviour [Unknown]
  - Violence-related symptom [Unknown]
  - Apathy [Unknown]
  - Affect lability [Unknown]
  - Crying [Unknown]
  - Irritability [Unknown]
  - Alopecia [Unknown]
  - Dry eye [Unknown]
  - Insomnia [Unknown]
  - Back pain [Unknown]
  - Musculoskeletal chest pain [Unknown]
  - Myalgia [Unknown]
